FAERS Safety Report 7265657-9 (Version None)
Quarter: 2011Q1

REPORT INFORMATION
  Report Type: 
  Country: None (occurrence: None)
  Receive Date: 20110120
  Receipt Date: 20100723
  Transmission Date: 20110831
  Serious: Yes (Disabling, Other)
  Sender: FDA-Public Use
  Company Number: ALA_00742_2010

PATIENT
  Sex: Female
  Weight: 86.637 kg

DRUGS (4)
  1. REGLAN [Suspect]
     Indication: IRRITABLE BOWEL SYNDROME
     Dosage: (DF ORAL)
     Route: 048
     Dates: start: 19950101
  2. REGLAN [Suspect]
     Indication: OESOPHAGEAL DISORDER
     Dosage: (DF ORAL)
     Route: 048
     Dates: start: 19950101
  3. REGLAN [Suspect]
     Indication: GASTRIC DISORDER
     Dosage: (DF ORAL)
     Route: 048
     Dates: start: 19950101
  4. REGLAN [Suspect]
     Indication: GASTROOESOPHAGEAL REFLUX DISEASE
     Dosage: (DF ORAL)
     Route: 048
     Dates: start: 19950101

REACTIONS (6)
  - EMOTIONAL DISORDER [None]
  - ECONOMIC PROBLEM [None]
  - EXTRAPYRAMIDAL DISORDER [None]
  - DYSKINESIA [None]
  - PARAESTHESIA [None]
  - EYE DISORDER [None]
